FAERS Safety Report 23859727 (Version 1)
Quarter: 2024Q2

REPORT INFORMATION
  Report Type: Spontaneous
  Country: BE (occurrence: BE)
  Receive Date: 20240515
  Receipt Date: 20240515
  Transmission Date: 20240716
  Serious: Yes (Hospitalization)
  Sender: FDA-Public Use
  Company Number: BE-OSMOTICA PHARMACEUTICALS-2024ALO00191

PATIENT
  Age: 21 Year
  Sex: Female

DRUGS (2)
  1. NIFEDIPINE [Suspect]
     Active Substance: NIFEDIPINE
     Indication: Premature labour
     Dosage: 10 MG, 4 TIMES IN 1 HOUR
  2. NIFEDIPINE [Suspect]
     Active Substance: NIFEDIPINE
     Indication: Tocolysis

REACTIONS (3)
  - Cardiogenic shock [Recovered/Resolved]
  - Pregnancy [Recovered/Resolved]
  - Product use in unapproved indication [Recovered/Resolved]
